FAERS Safety Report 25382702 (Version 3)
Quarter: 2025Q4

REPORT INFORMATION
  Report Type: Report from Study
  Country: JP (occurrence: JP)
  Receive Date: 20250602
  Receipt Date: 20251014
  Transmission Date: 20260117
  Serious: Yes (Death, Hospitalization, Other)
  Sender: TAKEDA
  Company Number: JP-TAKEDA-2022TJP076233

PATIENT
  Age: 67 Year
  Sex: Male
  Weight: 66 kg

DRUGS (11)
  1. TEDUGLUTIDE [Suspect]
     Active Substance: TEDUGLUTIDE
     Indication: Short-bowel syndrome
     Dosage: 0.05 MILLIGRAM/KILOGRAM, QD
     Dates: start: 20220214, end: 20220720
  2. TEDUGLUTIDE [Suspect]
     Active Substance: TEDUGLUTIDE
     Dosage: 0.025 MILLIGRAM/KILOGRAM, QD
     Dates: start: 20220721, end: 20221018
  3. TEDUGLUTIDE [Suspect]
     Active Substance: TEDUGLUTIDE
     Dosage: 0.05 MILLIGRAM/KILOGRAM, QD
     Dates: start: 20221019
  4. TEDUGLUTIDE [Suspect]
     Active Substance: TEDUGLUTIDE
     Dosage: 0.025 MILLIGRAM/KILOGRAM, QD
     Dates: start: 20231012, end: 20241010
  5. BISOPROLOL [Concomitant]
     Active Substance: BISOPROLOL
     Dosage: UNK
  6. BISOPROLOL [Concomitant]
     Active Substance: BISOPROLOL
     Dosage: 8 MILLIGRAM
  7. ZINC [Concomitant]
     Active Substance: ZINC
     Dosage: UNK
  8. FENTANYL [Concomitant]
     Active Substance: FENTANYL
     Dosage: UNK
  9. DAYVIGO [Concomitant]
     Active Substance: LEMBOREXANT
     Dosage: UNK
  10. VONOPRAZAN FUMARATE [Concomitant]
     Active Substance: VONOPRAZAN FUMARATE
     Dosage: UNK
  11. HERBALS [Concomitant]
     Active Substance: HERBALS
     Dosage: UNK

REACTIONS (3)
  - Acute kidney injury [Fatal]
  - Intestinal obstruction [Recovered/Resolved]
  - C-reactive protein increased [Recovered/Resolved]

NARRATIVE: CASE EVENT DATE: 20221006
